FAERS Safety Report 5736893-5 (Version None)
Quarter: 2008Q2

REPORT INFORMATION
  Report Type: 
  Country: None (occurrence: None)
  Receive Date: 20080509
  Receipt Date: 20070807
  Transmission Date: 20081010
  Serious: Yes (Other)
  Sender: FDA-Public Use
  Company Number: 2008VX000544

PATIENT
  Age: 76 Year
  Sex: Female

DRUGS (4)
  1. SELEGILINE HYDROCHLORIDE [Suspect]
     Indication: NARCOLEPSY
     Dosage: 10 MG; BID; PO
     Route: 048
     Dates: end: 20070315
  2. XYREM [Suspect]
     Indication: CATAPLEXY
     Dosage: 4.5 GM; QD; PO ; 6.25 GM; QD; PO ; 7.5 GM; QD
     Route: 048
     Dates: end: 20070321
  3. XYREM [Suspect]
     Indication: CATAPLEXY
     Dosage: 4.5 GM; QD; PO ; 6.25 GM; QD; PO ; 7.5 GM; QD
     Route: 048
     Dates: start: 20070105
  4. MODAFINIL [Concomitant]

REACTIONS (6)
  - ANXIETY [None]
  - DEPRESSION [None]
  - FEAR OF DEATH [None]
  - HYPERHIDROSIS [None]
  - PANIC DISORDER [None]
  - SUICIDAL IDEATION [None]
